FAERS Safety Report 9198551 (Version 2)
Quarter: 2013Q3

REPORT INFORMATION
  Report Type: Spontaneous
  Country: US (occurrence: None)
  Receive Date: 20120709
  Receipt Date: 20130724
  Transmission Date: 20140515
  Serious: Yes (Disabling, Other)
  Sender: FDA-Public Use
  Company Number: PHHY2011US39251

PATIENT
  Age: 65 Year
  Sex: Female
  Weight: 178 kg

DRUGS (4)
  1. GLEEVEC (IMATINIB) UNKNOWN [Suspect]
     Indication: CHRONIC MYELOID LEUKAEMIA
     Route: 048
     Dates: start: 20110321
  2. LOSARTAN POTASSIUM W/HYDROCHLOROTHIAZIDE (HYDROCHLORTHIAZIDE, LOSARTAN POTASSIUM) [Concomitant]
  3. LEVOXYL (LEVOTHYROXINE SODIUM) [Concomitant]
  4. PRAVASTATIN (PRAVASTATIN) [Concomitant]

REACTIONS (6)
  - Periorbital oedema [None]
  - Diarrhoea [None]
  - Eye swelling [None]
  - Joint swelling [None]
  - Arthralgia [None]
  - Eye haemorrhage [None]
